FAERS Safety Report 8589199-3 (Version None)
Quarter: 2012Q3

REPORT INFORMATION
  Report Type: 
  Country: None (occurrence: None)
  Receive Date: 20120813
  Receipt Date: 20120412
  Transmission Date: 20120928
  Serious: Yes (Hospitalization)
  Sender: FDA-Public Use
  Company Number: JP-009507513-1208JPN004972

PATIENT

DRUGS (9)
  1. TELAVIC [Suspect]
     Route: 048
     Dates: start: 20120321, end: 20120328
  2. PEGINTRON [Suspect]
     Dosage: 0.85MCG/KG/WEEK
     Route: 058
     Dates: start: 20120221, end: 20120321
  3. REBETOL [Suspect]
     Indication: HEPATITIS C
     Route: 048
     Dates: start: 20120207, end: 20120328
  4. XYZAL [Suspect]
     Route: 048
     Dates: end: 20120219
  5. EBASTINE [Concomitant]
     Route: 048
     Dates: start: 20120220, end: 20120328
  6. TELAVIC [Suspect]
     Indication: HEPATITIS C
     Route: 048
     Dates: start: 20120207
  7. LENDORMIN [Suspect]
     Indication: INSOMNIA
     Dosage: IT IS SINGLE USE DURING 0.25MG/DAY.
     Route: 048
  8. PEG-INTRON [Suspect]
     Indication: HEPATITIS C
     Dosage: 1.7MCG/KG/WEEK
     Route: 058
     Dates: start: 20120207, end: 20120214
  9. TELAVIC [Suspect]
     Route: 048
     Dates: start: 20120320

REACTIONS (1)
  - DRUG ERUPTION [None]
